FAERS Safety Report 8380457-4 (Version None)
Quarter: 2012Q2

REPORT INFORMATION
  Report Type: 
  Country: None (occurrence: None)
  Receive Date: 20120523
  Receipt Date: 20120517
  Transmission Date: 20120825
  Serious: Yes (Hospitalization)
  Sender: FDA-Public Use
  Company Number: US-GLAXOSMITHKLINE-A0978423A

PATIENT
  Age: 41 Year
  Sex: Female
  Weight: 61.1 kg

DRUGS (8)
  1. PAZOPANIB [Suspect]
     Indication: BREAST CANCER METASTATIC
     Dosage: 800MG PER DAY
     Route: 048
     Dates: start: 20120427
  2. LETROZOLE [Concomitant]
  3. OSCAL D [Concomitant]
  4. ZOLADEX [Concomitant]
  5. TYLENOL [Concomitant]
  6. MULTI-VITAMIN [Concomitant]
  7. ZOMETA [Concomitant]
     Route: 042
  8. TAMIFLU [Concomitant]

REACTIONS (2)
  - PYREXIA [None]
  - RASH MACULAR [None]
